FAERS Safety Report 4335377-9 (Version None)
Quarter: 2004Q2

REPORT INFORMATION
  Report Type: 
  Country: None (occurrence: None)
  Receive Date: 20040408
  Receipt Date: 20040408
  Transmission Date: 20050107
  Serious: Yes (Hospitalization)
  Sender: FDA-Public Use
  Company Number: None

PATIENT
  Sex: Female

DRUGS (9)
  1. INSULIN [Suspect]
     Indication: DIABETES MELLITUS INSULIN-DEPENDENT
     Dosage: 49 UNITS SQ
     Route: 058
     Dates: start: 20040118
  2. VALSARTAN [Concomitant]
  3. CLOPIDOGREL [Concomitant]
  4. ASPIRIN [Concomitant]
  5. ALPRAZOLAM [Concomitant]
  6. CLONIDINE [Concomitant]
  7. FUROSEMIDE [Concomitant]
  8. RANITIDINE [Concomitant]
  9. SYNTHROID [Concomitant]

REACTIONS (7)
  - CONFUSIONAL STATE [None]
  - DYSARTHRIA [None]
  - HYPERHIDROSIS [None]
  - HYPOGLYCAEMIA [None]
  - MEDICATION ERROR [None]
  - NAUSEA [None]
  - SYNCOPE [None]
